FAERS Safety Report 16841403 (Version 12)
Quarter: 2020Q2

REPORT INFORMATION
  Report Type: Report from Study
  Country: US (occurrence: US)
  Receive Date: 20190923
  Receipt Date: 20200415
  Transmission Date: 20200713
  Serious: Yes (Life-Threatening, Hospitalization, Other)
  Sender: FDA-Public Use
  Company Number: US-GLAXOSMITHKLINE-2019-TSO02611-US

PATIENT
  Age: 60 Year
  Sex: Female

DRUGS (9)
  1. NIRAPARIB [Suspect]
     Active Substance: NIRAPARIB
     Indication: METASTASES TO LIVER
     Dosage: 100 MG, QD
     Route: 048
     Dates: end: 20191110
  2. GABAPENTIN. [Concomitant]
     Active Substance: GABAPENTIN
     Indication: PRODUCT USED FOR UNKNOWN INDICATION
     Dosage: UNK
  3. NIRAPARIB [Suspect]
     Active Substance: NIRAPARIB
     Indication: MALIGNANT CONNECTIVE TISSUE NEOPLASM
     Dosage: 200 MG, QD, 7.30AM WITHOUT FOOD
     Route: 048
     Dates: start: 20190712, end: 20190726
  4. NIRAPARIB [Suspect]
     Active Substance: NIRAPARIB
     Dosage: 100 MG, QOD
     Route: 048
     Dates: start: 20200112
  5. NIRAPARIB [Suspect]
     Active Substance: NIRAPARIB
     Indication: NEOPLASM MALIGNANT
     Dosage: 100 MG, DAILY- 7:30AM - WITHOUT FOOD
     Dates: start: 20190917
  6. NIRAPARIB [Suspect]
     Active Substance: NIRAPARIB
     Indication: LEIOMYOSARCOMA METASTATIC
     Dosage: 100 MG DAILY AT 8 AM WITHOUT FOOD
     Route: 065
  7. DEPAKOTE [Concomitant]
     Active Substance: DIVALPROEX SODIUM
     Indication: PRODUCT USED FOR UNKNOWN INDICATION
     Dosage: UNK
  8. NIRAPARIB [Suspect]
     Active Substance: NIRAPARIB
     Dosage: 100 MG, QD
  9. XANAX [Concomitant]
     Active Substance: ALPRAZOLAM
     Indication: PRODUCT USED FOR UNKNOWN INDICATION
     Dosage: UNK

REACTIONS (44)
  - Squamous cell carcinoma [Unknown]
  - Anaemia [Recovered/Resolved]
  - Vertigo [Not Recovered/Not Resolved]
  - Contusion [Recovered/Resolved]
  - Vaginal haemorrhage [Recovered/Resolved]
  - Decreased appetite [Not Recovered/Not Resolved]
  - Insomnia [Recovered/Resolved]
  - Cough [Unknown]
  - Nausea [Recovered/Resolved]
  - Palpitations [Recovered/Resolved]
  - Epistaxis [Unknown]
  - Dyspnoea [Not Recovered/Not Resolved]
  - Fatigue [Not Recovered/Not Resolved]
  - Blood urine present [Unknown]
  - Pain [Unknown]
  - Inappropriate schedule of product administration [Unknown]
  - Neoplasm progression [Recovering/Resolving]
  - Upper-airway cough syndrome [Not Recovered/Not Resolved]
  - Dizziness [Recovered/Resolved]
  - Urinary tract infection [Not Recovered/Not Resolved]
  - Asthenia [Unknown]
  - Somnolence [Unknown]
  - Streptococcal infection [Unknown]
  - Stent placement [Unknown]
  - Product use in unapproved indication [Unknown]
  - Staphylococcal infection [Unknown]
  - Haemorrhoids [Unknown]
  - Anxiety [Not Recovered/Not Resolved]
  - Constipation [Recovered/Resolved]
  - Haemoglobin abnormal [Unknown]
  - Kidney infection [Recovered/Resolved]
  - Lethargy [Unknown]
  - Wheezing [Not Recovered/Not Resolved]
  - Depression [Not Recovered/Not Resolved]
  - Off label use [Unknown]
  - Thrombocytopenia [Recovering/Resolving]
  - Tumour invasion [Unknown]
  - Flatulence [Not Recovered/Not Resolved]
  - Weight decreased [Unknown]
  - Headache [Not Recovered/Not Resolved]
  - Thrombosis [Unknown]
  - Apathy [Unknown]
  - Abdominal pain upper [Recovered/Resolved]
  - Diarrhoea [Recovered/Resolved]

NARRATIVE: CASE EVENT DATE: 201909
